FAERS Safety Report 23269775 (Version 1)
Quarter: 2023Q4

REPORT INFORMATION
  Report Type: Spontaneous
  Country: CN (occurrence: CN)
  Receive Date: 20231207
  Receipt Date: 20231207
  Transmission Date: 20240110
  Serious: Yes (Hospitalization)
  Sender: FDA-Public Use
  Company Number: CN-ORGANON-O2312CHN000292

PATIENT
  Age: 73 Year
  Sex: Female
  Weight: 60 kg

DRUGS (11)
  1. DIPROSPAN [Suspect]
     Active Substance: BETAMETHASONE DIPROPIONATE\BETAMETHASONE SODIUM PHOSPHATE
     Indication: Gouty arthritis
     Dosage: 1 MILLILITER, QD
     Route: 030
     Dates: start: 20230310, end: 20230310
  2. DIPROSPAN [Suspect]
     Active Substance: BETAMETHASONE DIPROPIONATE\BETAMETHASONE SODIUM PHOSPHATE
     Dosage: 1 MILLILITER, QD
     Route: 030
     Dates: start: 20230512
  3. ENALAPRIL MALEATE [Concomitant]
     Active Substance: ENALAPRIL MALEATE
     Indication: Hypertension
     Dosage: 5 MILLIGRAM, QD
     Route: 048
     Dates: start: 202208
  4. FEBUXOSTAT [Concomitant]
     Active Substance: FEBUXOSTAT
     Indication: Blood urea increased
     Dosage: 40 MILLIGRAM, QD
     Route: 048
     Dates: start: 201705
  5. DAPAGLIFLOZIN [Concomitant]
     Active Substance: DAPAGLIFLOZIN
     Indication: Diabetes mellitus
     Dosage: 10 MILLIGRAM, QD
     Route: 048
     Dates: start: 202208
  6. INSULIN ASPART\INSULIN DEGLUDEC [Concomitant]
     Active Substance: INSULIN ASPART\INSULIN DEGLUDEC
     Indication: Diabetes mellitus
     Dosage: 14 INTERNATIONAL UNIT, QD
     Route: 058
     Dates: start: 202208, end: 20230523
  7. INSULIN ASPART\INSULIN DEGLUDEC [Concomitant]
     Active Substance: INSULIN ASPART\INSULIN DEGLUDEC
     Dosage: 16 INTERNATIONAL UNIT, QD
     Route: 058
     Dates: start: 20230524
  8. FELODIPINE [Concomitant]
     Active Substance: FELODIPINE
     Indication: Hypertension
     Dosage: 10 MILLIGRAM, QD
     Route: 048
     Dates: start: 202208
  9. METOPROLOL [Concomitant]
     Active Substance: METOPROLOL
     Indication: Hypertension
     Dosage: 23.75 MILLIGRAM, QD
     Route: 048
     Dates: start: 202208
  10. TICAGRELOR [Concomitant]
     Active Substance: TICAGRELOR
     Indication: Coronary artery disease
     Dosage: 90 MILLIGRAM, BID
     Route: 048
     Dates: start: 202208
  11. ASPIRIN [Concomitant]
     Active Substance: ASPIRIN
     Indication: Coronary artery disease
     Dosage: 01 GRAM, QD (ENTERIC COATED TABLET)
     Route: 048
     Dates: start: 202208

REACTIONS (1)
  - Chronic gastritis [Recovering/Resolving]

NARRATIVE: CASE EVENT DATE: 20230525
